FAERS Safety Report 6605127-1 (Version None)
Quarter: 2010Q1

REPORT INFORMATION
  Report Type: 
  Country: None (occurrence: None)
  Receive Date: 20100226
  Receipt Date: 20091207
  Transmission Date: 20100710
  Serious: Yes (Death)
  Sender: FDA-Public Use
  Company Number: ES-SANOFI-AVENTIS-2010SA010502

PATIENT
  Age: 65 Year

DRUGS (8)
  1. OXALIPLATIN [Suspect]
     Indication: COLON CANCER
     Route: 041
     Dates: start: 20071107, end: 20071107
  2. OXALIPLATIN [Suspect]
     Route: 041
     Dates: start: 20080421, end: 20080421
  3. CETUXIMAB [Suspect]
     Indication: COLON CANCER
     Route: 042
     Dates: start: 20071107, end: 20071107
  4. CETUXIMAB [Suspect]
     Route: 042
     Dates: start: 20080428, end: 20080428
  5. FLUOROURACIL [Suspect]
     Indication: COLON CANCER
     Route: 042
     Dates: start: 20071107, end: 20071108
  6. FLUOROURACIL [Suspect]
     Route: 042
     Dates: start: 20080421, end: 20080422
  7. FOLINIC ACID [Suspect]
     Indication: COLON CANCER
     Route: 042
     Dates: start: 20071107, end: 20071108
  8. FOLINIC ACID [Suspect]
     Route: 042
     Dates: start: 20080421, end: 20080422

REACTIONS (1)
  - SUDDEN DEATH [None]
